FAERS Safety Report 7949236-3 (Version None)
Quarter: 2011Q4

REPORT INFORMATION
  Report Type: 
  Country: None (occurrence: None)
  Receive Date: 20111130
  Receipt Date: 20111124
  Transmission Date: 20120403
  Serious: Yes (Other)
  Sender: FDA-Public Use
  Company Number: JP-ROCHE-734836

PATIENT
  Sex: Male
  Weight: 57 kg

DRUGS (4)
  1. ACTEMRA [Suspect]
     Route: 041
  2. ACTEMRA [Suspect]
     Indication: RHEUMATOID ARTHRITIS
     Route: 041
     Dates: start: 20100806, end: 20100902
  3. PREDNISOLONE [Concomitant]
     Route: 048
  4. RHEUMATREX [Suspect]
     Indication: RHEUMATOID ARTHRITIS
     Route: 048
     Dates: start: 20061005, end: 20100928

REACTIONS (1)
  - INTERSTITIAL LUNG DISEASE [None]
